FAERS Safety Report 22993486 (Version 3)
Quarter: 2024Q1

REPORT INFORMATION
  Report Type: Report from Study
  Country: US (occurrence: US)
  Receive Date: 20230927
  Receipt Date: 20240207
  Transmission Date: 20240409
  Serious: No
  Sender: FDA-Public Use
  Company Number: US-002147023-NVSC2023US209208

PATIENT
  Sex: Female

DRUGS (1)
  1. COSENTYX [Suspect]
     Active Substance: SECUKINUMAB
     Indication: Product used for unknown indication
     Dosage: UNK
     Route: 065

REACTIONS (3)
  - Pain [Unknown]
  - Bone pain [Unknown]
  - Rash [Unknown]
